FAERS Safety Report 4285292-4 (Version None)
Quarter: 2004Q1

REPORT INFORMATION
  Report Type: 
  Country: None (occurrence: None)
  Receive Date: 20040202
  Receipt Date: 20040123
  Transmission Date: 20041129
  Serious: Yes (Disabling)
  Sender: FDA-Public Use
  Company Number: 200308694

PATIENT
  Age: 72 Year
  Sex: Female

DRUGS (4)
  1. STREPTOKINASE (STREPTOKINASE) [Suspect]
     Indication: ACUTE MYOCARDIAL INFARCTION
     Dosage: 1.5 MIU DAILY IV
     Route: 042
     Dates: start: 20030505, end: 20030505
  2. ASPIRIN [Suspect]
     Dosage: 100 MG DAILY PO
     Route: 048
  3. ENOXAPARIN OR PLACEBO VS HEPARIN OR PLACEBO [Suspect]
     Indication: ACUTE MYOCARDIAL INFARCTION
     Dates: start: 20030505, end: 20030506
  4. DOPAMINE [Concomitant]

REACTIONS (5)
  - BLOOD PRESSURE DECREASED [None]
  - BRADYARRHYTHMIA [None]
  - CARDIOGENIC SHOCK [None]
  - GASTRITIS HAEMORRHAGIC [None]
  - HAEMORRHAGE [None]
